FAERS Safety Report 13082137 (Version 5)
Quarter: 2018Q1

REPORT INFORMATION
  Report Type: Report from Study
  Country: US (occurrence: US)
  Receive Date: 20170103
  Receipt Date: 20180319
  Transmission Date: 20180508
  Serious: Yes (Hospitalization, Other)
  Sender: FDA-Public Use
  Company Number: US-SA-2016SA224040

PATIENT
  Age: 43 Year
  Sex: Male

DRUGS (2)
  1. LEMTRADA [Suspect]
     Active Substance: ALEMTUZUMAB
     Indication: MULTIPLE SCLEROSIS
     Route: 041
     Dates: start: 20161205, end: 20161209
  2. LEMTRADA [Suspect]
     Active Substance: ALEMTUZUMAB
     Indication: MULTIPLE SCLEROSIS
     Route: 041
     Dates: start: 20171211, end: 20171213

REACTIONS (16)
  - Nephrolithiasis [Recovered/Resolved]
  - Arthralgia [Recovered/Resolved]
  - Dizziness [Not Recovered/Not Resolved]
  - Asthma [Recovered/Resolved]
  - Grip strength decreased [Recovering/Resolving]
  - Sensation of foreign body [Recovered/Resolved]
  - Wheezing [Not Recovered/Not Resolved]
  - Headache [Recovered/Resolved]
  - Atelectasis [Recovered/Resolved]
  - Pneumothorax [Recovered/Resolved]
  - Nausea [Not Recovered/Not Resolved]
  - Dysphagia [Not Recovered/Not Resolved]
  - Rales [Not Recovered/Not Resolved]
  - Vision blurred [Recovering/Resolving]
  - Renal failure [Recovering/Resolving]
  - Chest discomfort [Not Recovered/Not Resolved]

NARRATIVE: CASE EVENT DATE: 201612
